FAERS Safety Report 16916170 (Version 1)
Quarter: 2019Q4

REPORT INFORMATION
  Report Type: Spontaneous
  Country: US (occurrence: US)
  Receive Date: 20191014
  Receipt Date: 20191014
  Transmission Date: 20200122
  Serious: No
  Sender: FDA-Public Use
  Company Number: US-SA-2019SA274834

PATIENT
  Sex: Female
  Weight: 51.5 kg

DRUGS (1)
  1. FABRAZYME [Suspect]
     Active Substance: AGALSIDASE BETA
     Dosage: UNK, UNK
     Route: 041

REACTIONS (3)
  - Musculoskeletal stiffness [Unknown]
  - Migraine [Unknown]
  - Headache [Unknown]
